FAERS Safety Report 8510895-8 (Version None)
Quarter: 2012Q2

REPORT INFORMATION
  Report Type: 
  Country: None (occurrence: None)
  Receive Date: 20120406
  Receipt Date: 20111118
  Transmission Date: 20120825
  Serious: Yes (Hospitalization)
  Sender: FDA-Public Use
  Company Number: US-CYPR-2011-000055

PATIENT
  Sex: Male
  Weight: 86 kg

DRUGS (12)
  1. NOVOLOG [Concomitant]
  2. LEVEMIR [Concomitant]
  3. COLACE [Concomitant]
  4. CLOPIDOGREL [Suspect]
     Indication: ANTIPLATELET THERAPY
     Dosage: (75 MG QD ORAL)
     Route: 048
     Dates: start: 20110310
  5. ASPIRIN [Suspect]
     Indication: CORONARY ARTERY DISEASE
     Dosage: (325 MG QD ORAL) ; (81 MG QD ORAL)
     Route: 048
     Dates: start: 20110310
  6. ASPIRIN [Suspect]
     Indication: CORONARY ARTERY DISEASE
     Dosage: (325 MG QD ORAL) ; (81 MG QD ORAL)
     Route: 048
     Dates: start: 20091007, end: 20110306
  7. NEURONTIN [Concomitant]
  8. METFORMIN HYDROCHLORIDE [Concomitant]
  9. AZOR [Concomitant]
  10. METOPROLOL SUCCINATE [Concomitant]
  11. CYPHER STENT [Concomitant]
  12. GLYBURIDE [Concomitant]

REACTIONS (1)
  - DIABETES MELLITUS INADEQUATE CONTROL [None]
